FAERS Safety Report 6825010-6 (Version None)
Quarter: 2010Q3

REPORT INFORMATION
  Report Type: 
  Country: None (occurrence: None)
  Receive Date: 20100708
  Receipt Date: 20061206
  Transmission Date: 20110219
  Serious: No
  Sender: FDA-Public Use
  Company Number: US-PFIZER INC-2006152674

PATIENT
  Sex: Female
  Weight: 63.5 kg

DRUGS (7)
  1. CHANTIX [Suspect]
     Indication: SMOKING CESSATION THERAPY
     Route: 048
     Dates: start: 20061201
  2. EFFEXOR [Concomitant]
     Indication: DEPRESSION
  3. TOPROL-XL [Concomitant]
     Indication: MIGRAINE
  4. GABAPENTIN [Concomitant]
     Indication: MIGRAINE
  5. VITAMIN B-12 [Concomitant]
     Indication: MIGRAINE
  6. VITAMIN B-12 [Concomitant]
     Indication: MIGRAINE
  7. VITAMINS [Concomitant]

REACTIONS (1)
  - NIGHTMARE [None]
